FAERS Safety Report 10956843 (Version 1)
Quarter: 2015Q1

REPORT INFORMATION
  Report Type: Report from Study
  Country: DE (occurrence: DE)
  Receive Date: 20150326
  Receipt Date: 20150326
  Transmission Date: 20150721
  Serious: Yes (Death)
  Sender: FDA-Public Use
  Company Number: DE-ASTRAZENECA-2015SE24789

PATIENT
  Age: 56 Year
  Sex: Male

DRUGS (15)
  1. COCAINE [Suspect]
     Active Substance: COCAINE
     Route: 045
  2. THEOPHYLLINE [Suspect]
     Active Substance: THEOPHYLLINE ANHYDROUS
     Route: 065
  3. LEVAMISOLE [Suspect]
     Active Substance: LEVAMISOLE
     Route: 065
  4. HEROIN [Suspect]
     Active Substance: DIACETYLMORPHINE
     Route: 045
  5. THEOBROMINE [Suspect]
     Active Substance: THEOBROMINE
     Route: 065
  6. ALCOHOL. [Suspect]
     Active Substance: ALCOHOL
     Route: 065
  7. NOSCAPINE [Suspect]
     Active Substance: NOSCAPINE
     Route: 065
  8. DOXYLAMINE [Suspect]
     Active Substance: DOXYLAMINE
     Route: 065
  9. SILDENAFIL. [Suspect]
     Active Substance: SILDENAFIL
     Route: 065
  10. CAFFEINE. [Suspect]
     Active Substance: CAFFEINE
     Route: 065
  11. LIDOCAINE. [Suspect]
     Active Substance: LIDOCAINE
     Route: 065
  12. PAPAVERINE [Suspect]
     Active Substance: PAPAVERINE
     Route: 065
  13. PHENACETIN [Suspect]
     Active Substance: PHENACETIN
     Route: 065
  14. PARACETAMOL [Suspect]
     Active Substance: ACETAMINOPHEN
     Route: 065
  15. HYDROXYZINE [Suspect]
     Active Substance: HYDROXYZINE\HYDROXYZINE HYDROCHLORIDE
     Route: 065

REACTIONS (3)
  - Toxicity to various agents [Fatal]
  - Apnoea [Fatal]
  - Cardiac arrest [Fatal]
